FAERS Safety Report 7071778-6 (Version None)
Quarter: 2010Q4

REPORT INFORMATION
  Report Type: 
  Country: None (occurrence: None)
  Receive Date: 20101029
  Receipt Date: 20091021
  Transmission Date: 20110411
  Serious: No
  Sender: FDA-Public Use
  Company Number: A0812767A

PATIENT
  Age: 44 Year
  Sex: Male

DRUGS (2)
  1. ADVAIR DISKUS 100/50 [Suspect]
     Indication: ASTHMA
     Dosage: 1PUFF PER DAY
     Route: 055
     Dates: start: 20080101, end: 20080101
  2. HYDROCHLOROTHIAZIDE [Concomitant]

REACTIONS (2)
  - EPISTAXIS [None]
  - HEADACHE [None]
